FAERS Safety Report 9839056 (Version 1)
Quarter: 2014Q1

REPORT INFORMATION
  Report Type: Spontaneous
  Country: TH (occurrence: TH)
  Receive Date: 20140123
  Receipt Date: 20140123
  Transmission Date: 20141002
  Serious: Yes (Other)
  Sender: FDA-Public Use
  Company Number: PHHY2014TH005756

PATIENT
  Age: 29 Year
  Sex: Male

DRUGS (2)
  1. IDARUBICIN [Suspect]
     Indication: ACUTE PROMYELOCYTIC LEUKAEMIA
     Dosage: 10 MG/M2
     Route: 042
  2. VESANOID [Suspect]
     Indication: ACUTE PROMYELOCYTIC LEUKAEMIA
     Dosage: 45 MG/M2, DAILY
     Route: 048

REACTIONS (10)
  - Retinoic acid syndrome [Unknown]
  - Pleural effusion [Unknown]
  - Chest pain [Unknown]
  - Crepitations [Unknown]
  - Dyspnoea [Unknown]
  - Haematuria [Unknown]
  - Hypotension [Unknown]
  - Pyrexia [Unknown]
  - Oliguria [Unknown]
  - Cough [Unknown]
